FAERS Safety Report 17539749 (Version 1)
Quarter: 2020Q1

REPORT INFORMATION
  Report Type: Other
  Country: FR (occurrence: FR)
  Receive Date: 20200313
  Receipt Date: 20200313
  Transmission Date: 20200409
  Serious: Yes (Life-Threatening, Hospitalization)
  Sender: FDA-Public Use
  Company Number: FR-ALSI-202000081

PATIENT
  Age: 26 Year
  Sex: Female

DRUGS (8)
  1. THIOPENTAL [Concomitant]
     Active Substance: THIOPENTAL
  2. PROPOFOL. [Concomitant]
     Active Substance: PROPOFOL
  3. HALOTHANE. [Concomitant]
     Active Substance: HALOTHANE
  4. VECURONIUM [Concomitant]
     Active Substance: VECURONIUM BROMIDE
  5. CARBON DIOXIDE. [Suspect]
     Active Substance: CARBON DIOXIDE
     Indication: LAPAROSCOPIC SURGERY
  6. OXYGEN. [Concomitant]
     Active Substance: OXYGEN
  7. NITROUS OXIDE. [Concomitant]
     Active Substance: NITROUS OXIDE
  8. FENTANYL. [Concomitant]
     Active Substance: FENTANYL

REACTIONS (2)
  - Pulmonary oedema [Recovered/Resolved]
  - Air embolism [Recovered/Resolved]
